FAERS Safety Report 9181239 (Version 1)
Quarter: 2013Q1

REPORT INFORMATION
  Report Type: Spontaneous
  Country: US (occurrence: US)
  Receive Date: 20130322
  Receipt Date: 20130322
  Transmission Date: 20140127
  Serious: No
  Sender: FDA-Public Use
  Company Number: US-MYLANLABS-2012S1023196

PATIENT
  Sex: Male

DRUGS (8)
  1. EMSAM [Suspect]
     Indication: DEPRESSION
     Dosage: CHANGED Q24H
     Route: 062
  2. SEROQUEL [Concomitant]
     Indication: DEPRESSION
     Route: 048
  3. CLONAZEPAM [Concomitant]
     Indication: DEPRESSION
     Route: 048
  4. ZOLPIDEM [Concomitant]
     Indication: INSOMNIA
     Route: 048
  5. TAMSULOSIN [Concomitant]
     Indication: BENIGN PROSTATIC HYPERPLASIA
     Route: 048
  6. METOPROLOL SUCCINATE [Concomitant]
     Indication: BLOOD PRESSURE
     Route: 048
  7. ASPIRIN [Concomitant]
     Route: 048
  8. SYMBICORT [Concomitant]
     Indication: BRONCHITIS CHRONIC
     Dosage: 2 PUFFS QHS
     Route: 055

REACTIONS (1)
  - Application site rash [Not Recovered/Not Resolved]
